FAERS Safety Report 6258291-0 (Version None)
Quarter: 2009Q3

REPORT INFORMATION
  Report Type: 
  Country: None (occurrence: None)
  Receive Date: 20090707
  Receipt Date: 20090629
  Transmission Date: 20100115
  Serious: Yes (Life-Threatening, Hospitalization)
  Sender: FDA-Public Use
  Company Number: CA-BAYER-200925091NA

PATIENT
  Age: 25 Year
  Sex: Female
  Weight: 110 kg

DRUGS (4)
  1. YASMIN [Suspect]
     Indication: DRUG USE FOR UNKNOWN INDICATION
     Route: 048
  2. AXERT [Concomitant]
  3. FLOVENT [Concomitant]
  4. VENTOLIN [Concomitant]

REACTIONS (8)
  - COUGH [None]
  - DYSPNOEA [None]
  - INCREASED UPPER AIRWAY SECRETION [None]
  - MUSCLE SPASMS [None]
  - NAUSEA [None]
  - PULMONARY HYPERTENSION [None]
  - RENAL PAIN [None]
  - VOMITING [None]
